FAERS Safety Report 7640057-8 (Version None)
Quarter: 2011Q3

REPORT INFORMATION
  Report Type: 
  Country: None (occurrence: None)
  Receive Date: 20110727
  Receipt Date: 20110718
  Transmission Date: 20111222
  Serious: Yes (Hospitalization, Other)
  Sender: FDA-Public Use
  Company Number: US-ASTRAZENECA-2011SE42798

PATIENT
  Age: 63 Year
  Sex: Female

DRUGS (3)
  1. SEROQUEL [Suspect]
     Indication: BIPOLAR DISORDER
     Route: 048
     Dates: start: 20100701
  2. SEROQUEL [Suspect]
     Route: 048
     Dates: start: 20100601
  3. DEPAKOTE [Concomitant]
     Dosage: DAILY
     Route: 048

REACTIONS (3)
  - FEELING ABNORMAL [None]
  - FALL [None]
  - PARKINSON'S DISEASE [None]
